FAERS Safety Report 5456795-1 (Version None)
Quarter: 2007Q3

REPORT INFORMATION
  Report Type: 
  Country: None (occurrence: None)
  Receive Date: 20070918
  Receipt Date: 20061127
  Transmission Date: 20080115
  Serious: No
  Sender: FDA-Public Use
  Company Number: US-ASTRAZENECA-2006UW26266

PATIENT
  Age: 53 Year
  Sex: Male
  Weight: 79.4 kg

DRUGS (2)
  1. SEROQUEL [Suspect]
     Indication: BIPOLAR DISORDER
     Route: 048
  2. PROZAC [Concomitant]

REACTIONS (1)
  - BLOOD URINE PRESENT [None]
